FAERS Safety Report 12366792 (Version 4)
Quarter: 2016Q3

REPORT INFORMATION
  Report Type: Spontaneous
  Country: GB (occurrence: GB)
  Receive Date: 20160513
  Receipt Date: 20160706
  Transmission Date: 20161109
  Serious: Yes (Other)
  Sender: FDA-Public Use
  Company Number: GB-AMGEN-GBRSP2016060758

PATIENT
  Age: 63 Year
  Sex: Female

DRUGS (1)
  1. ENBREL [Suspect]
     Active Substance: ETANERCEPT
     Indication: PRODUCT USED FOR UNKNOWN INDICATION
     Dosage: 50 MG, WEEKLY
     Route: 058

REACTIONS (6)
  - Lower respiratory tract infection [Not Recovered/Not Resolved]
  - Cough [Recovering/Resolving]
  - Viral upper respiratory tract infection [Recovering/Resolving]
  - Malaise [Recovering/Resolving]
  - Immune system disorder [Unknown]
  - Influenza [Recovering/Resolving]
